FAERS Safety Report 4609973-5 (Version None)
Quarter: 2005Q1

REPORT INFORMATION
  Report Type: 
  Country: None (occurrence: None)
  Receive Date: 20050314
  Receipt Date: 20040611
  Transmission Date: 20050727
  Serious: No
  Sender: FDA-Public Use
  Company Number: 8197

PATIENT
  Age: 64 Year
  Sex: Female

DRUGS (4)
  1. METHOTREXATE [Suspect]
     Indication: BLADDER CANCER
     Route: 042
     Dates: start: 20040330
  2. VINBLASTINE [Suspect]
     Indication: BLADDER CANCER
     Dosage: 4 MG
     Route: 042
     Dates: start: 20040331
  3. DOXORUBICIN [Suspect]
     Indication: BLADDER CANCER
     Dosage: 40 MG
     Route: 042
     Dates: start: 20040331
  4. CISPLATIN [Suspect]
     Indication: BLADDER CANCER
     Dosage: 100 MG
     Route: 042
     Dates: start: 20040331

REACTIONS (2)
  - NEUTROPENIA [None]
  - WHITE BLOOD CELL COUNT DECREASED [None]
